FAERS Safety Report 5724260-X (Version None)
Quarter: 2008Q2

REPORT INFORMATION
  Report Type: 
  Country: None (occurrence: None)
  Receive Date: 20080424
  Receipt Date: 20070809
  Transmission Date: 20081010
  Serious: Yes (Other)
  Sender: FDA-Public Use
  Company Number: TEST00207033614

PATIENT
  Age: 6 Month
  Sex: Male
  Weight: 14.4 kg

DRUGS (2)
  1. TESTOSTERONE [Suspect]
     Indication: ACCIDENTAL EXPOSURE
     Dosage: UNKNOWN DAILY TRANSCUTANEOUS DAILY DOSE:  UNKNOWN
  2. TESTOSTERONE [Suspect]
     Indication: LIBIDO DECREASED
     Dosage: UNKNOWN DAILY TRANSCUTANEOUS DAILY DOSE:  UNKNOWN

REACTIONS (1)
  - PRECOCIOUS PUBERTY [None]
